FAERS Safety Report 6463669-6 (Version None)
Quarter: 2009Q4

REPORT INFORMATION
  Report Type: 
  Country: None (occurrence: None)
  Receive Date: 20091123
  Receipt Date: 20091119
  Transmission Date: 20100525
  Serious: Yes (Disabling, Other)
  Sender: FDA-Public Use
  Company Number: 1-20681031

PATIENT
  Age: 76 Year
  Sex: Male

DRUGS (1)
  1. CLINDAMYCIN [Suspect]
     Indication: INFECTION PROPHYLAXIS
     Dosage: 300 MG 3 TIMES DAILY, ORAL
     Route: 048

REACTIONS (6)
  - DRUG HYPERSENSITIVITY [None]
  - DRY GANGRENE [None]
  - FOOT AMPUTATION [None]
  - LEG AMPUTATION [None]
  - OSTEOMYELITIS [None]
  - VASCULITIS NECROTISING [None]
